FAERS Safety Report 25595172 (Version 1)
Quarter: 2025Q3

REPORT INFORMATION
  Report Type: Spontaneous
  Country: US (occurrence: US)
  Receive Date: 20250723
  Receipt Date: 20250723
  Transmission Date: 20251020
  Serious: Yes (Hospitalization)
  Sender: ASTELLAS
  Company Number: US-ASTELLAS-2025-AER-039728

PATIENT
  Age: 30 Year
  Sex: Male

DRUGS (1)
  1. ISAVUCONAZOLE [Suspect]
     Active Substance: ISAVUCONAZOLE
     Indication: Bronchopulmonary aspergillosis
     Route: 065

REACTIONS (2)
  - Gastrointestinal disorder [Unknown]
  - Drug ineffective [Unknown]
